FAERS Safety Report 4989354-5 (Version None)
Quarter: 2006Q2

REPORT INFORMATION
  Report Type: 
  Country: None (occurrence: None)
  Receive Date: 20060426
  Receipt Date: 20060414
  Transmission Date: 20061013
  Serious: Yes (Other)
  Sender: FDA-Public Use
  Company Number: 2006051507

PATIENT
  Age: 65 Year
  Sex: Female

DRUGS (4)
  1. DETROL LA [Suspect]
     Indication: POLLAKIURIA
     Dosage: 4 MG (4 MG, 1 IN 1 D), ORAL
     Route: 048
     Dates: start: 20040101
  2. LITHIUM (LITHIUM) [Suspect]
     Indication: BIPOLAR I DISORDER
     Dosage: 900 MG (900 MG, 1 IN 1 D)
  3. TYLENOL [Suspect]
     Indication: ILL-DEFINED DISORDER
  4. SYNTHROID [Concomitant]

REACTIONS (4)
  - CONSTIPATION [None]
  - DRUG EFFECT DECREASED [None]
  - DRY MOUTH [None]
  - WEIGHT INCREASED [None]
